FAERS Safety Report 4419824-X (Version None)
Quarter: 2004Q3

REPORT INFORMATION
  Report Type: 
  Country: None (occurrence: None)
  Receive Date: 20040804
  Receipt Date: 20040708
  Transmission Date: 20050211
  Serious: Yes (Hospitalization, Other)
  Sender: FDA-Public Use
  Company Number: USA040772007

PATIENT
  Age: 82 Year
  Sex: Female
  Weight: 55 kg

DRUGS (20)
  1. FORTEO [Suspect]
     Indication: OSTEOPOROSIS
     Dosage: 20 UG/1 DAY
     Dates: start: 20030101
  2. DIGITEX (DIGOXIN) [Concomitant]
  3. COUMADIN [Concomitant]
  4. PROPRANOLOL [Concomitant]
  5. PROVIGIL [Concomitant]
  6. FLONASE [Concomitant]
  7. FUROSEMIDE [Concomitant]
  8. LEVOTHROID [Concomitant]
  9. PRIMIDONE [Concomitant]
  10. LIPITOR [Concomitant]
  11. AMBIEN [Concomitant]
  12. MESCOLOR [Concomitant]
  13. OCTOVIT [Concomitant]
  14. MULTIVITAMIN [Concomitant]
  15. VITAMIN E [Concomitant]
  16. COLACE (DOCUSATE SODIUM) [Concomitant]
  17. FISH OIL [Concomitant]
  18. THIAMINE HCL [Concomitant]
  19. VITAMIN C [Concomitant]
  20. VITAMIN K TAB [Concomitant]

REACTIONS (2)
  - BREAST CANCER [None]
  - PHARMACEUTICAL PRODUCT COMPLAINT [None]
